FAERS Safety Report 12445414 (Version 1)
Quarter: 2016Q2

REPORT INFORMATION
  Report Type: Report from Study
  Country: DE (occurrence: DE)
  Receive Date: 20160608
  Receipt Date: 20160608
  Transmission Date: 20160815
  Serious: Yes (Hospitalization)
  Sender: FDA-Public Use
  Company Number: DE-ABBVIE-16K-062-1641988-00

PATIENT
  Age: 45 Year
  Sex: Female

DRUGS (2)
  1. HUMIRA [Suspect]
     Active Substance: ADALIMUMAB
     Indication: COLITIS ULCERATIVE
     Route: 058
     Dates: start: 20150623
  2. HUMIRA [Suspect]
     Active Substance: ADALIMUMAB
     Route: 058
     Dates: start: 20160502

REACTIONS (4)
  - Intestinal stenosis [Not Recovered/Not Resolved]
  - Pancreatic insufficiency [Not Recovered/Not Resolved]
  - Fructose intolerance [Not Recovered/Not Resolved]
  - Cholangitis sclerosing [Unknown]

NARRATIVE: CASE EVENT DATE: 201604
